FAERS Safety Report 21884371 (Version 1)
Quarter: 2023Q1

REPORT INFORMATION
  Report Type: Spontaneous
  Country: US (occurrence: US)
  Receive Date: 20230119
  Receipt Date: 20230119
  Transmission Date: 20230417
  Serious: Yes (Other)
  Sender: FDA-Public Use
  Company Number: US-NALPROPION PHARMACEUTICALS INC.-US-2023CUR000097

PATIENT
  Sex: Female

DRUGS (1)
  1. CONTRAVE [Suspect]
     Active Substance: BUPROPION HYDROCHLORIDE\NALTREXONE HYDROCHLORIDE
     Indication: Product used for unknown indication
     Dosage: STRENGTH 8/90 MG, ONE PILL (ONE TABLET ONCE A DAY)
     Route: 065

REACTIONS (5)
  - Seizure [Recovering/Resolving]
  - Illness [Recovering/Resolving]
  - Frequent bowel movements [Recovering/Resolving]
  - Impaired work ability [Recovering/Resolving]
  - Hyperhidrosis [Recovering/Resolving]
